FAERS Safety Report 24735727 (Version 1)
Quarter: 2024Q4

REPORT INFORMATION
  Report Type: Spontaneous
  Country: US (occurrence: US)
  Receive Date: 20241216
  Receipt Date: 20241216
  Transmission Date: 20250114
  Serious: Yes (Other)
  Sender: APOTEX
  Company Number: US-APOTEX-2024AP019606

PATIENT
  Age: 1 Year
  Sex: Male

DRUGS (6)
  1. MELPHALAN [Suspect]
     Active Substance: MELPHALAN
     Indication: Retinoblastoma
     Dosage: UNK
     Route: 013
  2. MELPHALAN [Suspect]
     Active Substance: MELPHALAN
     Dosage: UNK
  3. CARBOPLATIN [Suspect]
     Active Substance: CARBOPLATIN
     Indication: Retinoblastoma
     Dosage: UNK
     Route: 013
  4. TOPOTECAN [Suspect]
     Active Substance: TOPOTECAN HYDROCHLORIDE
     Indication: Retinoblastoma
     Dosage: UNK
     Route: 013
  5. TOPOTECAN [Suspect]
     Active Substance: TOPOTECAN HYDROCHLORIDE
     Dosage: UNK
  6. CYCLOPHOSPHAMIDE [Suspect]
     Active Substance: CYCLOPHOSPHAMIDE
     Indication: Retinoblastoma
     Dosage: 1.3 GRAM/METER SQUARE

REACTIONS (5)
  - Ophthalmic artery occlusion [Unknown]
  - Cranial nerve paralysis [Unknown]
  - Central hypothyroidism [Recovering/Resolving]
  - Adrenal insufficiency [Recovering/Resolving]
  - Hypopituitarism [Unknown]
